FAERS Safety Report 4983685-0 (Version None)
Quarter: 2006Q2

REPORT INFORMATION
  Report Type: 
  Country: None (occurrence: None)
  Receive Date: 20060425
  Receipt Date: 20060425
  Transmission Date: 20061013
  Serious: Yes (Hospitalization)
  Sender: FDA-Public Use
  Company Number: None

PATIENT
  Sex: Male

DRUGS (6)
  1. CLOPIDOGREL [Suspect]
     Indication: CORONARY ARTERY DISEASE
     Dosage: 75 MG
  2. LISINOPRIL [Concomitant]
  3. SIMVASTATIN [Concomitant]
  4. OMEPRAZOLE [Concomitant]
  5. DOCUSATE [Concomitant]
  6. METOPROLOL [Concomitant]

REACTIONS (4)
  - ASTHENIA [None]
  - DIZZINESS [None]
  - MELAENA [None]
  - UPPER GASTROINTESTINAL HAEMORRHAGE [None]
